FAERS Safety Report 7420719-8 (Version None)
Quarter: 2011Q2

REPORT INFORMATION
  Report Type: 
  Country: None (occurrence: None)
  Receive Date: 20110418
  Receipt Date: 20110412
  Transmission Date: 20111010
  Serious: Yes (Other)
  Sender: FDA-Public Use
  Company Number: US-ROCHE-751883

PATIENT
  Sex: Male
  Weight: 79.4 kg

DRUGS (2)
  1. ACCUTANE [Suspect]
     Indication: ACNE
     Route: 065
     Dates: start: 19820101, end: 19850101
  2. ACCUTANE [Suspect]
     Route: 065
     Dates: start: 20080101

REACTIONS (6)
  - COLITIS ULCERATIVE [None]
  - ANXIETY [None]
  - INTESTINAL OBSTRUCTION [None]
  - INFLAMMATORY BOWEL DISEASE [None]
  - ANAEMIA [None]
  - EMOTIONAL DISORDER [None]
